FAERS Safety Report 5084399-1 (Version None)
Quarter: 2006Q3

REPORT INFORMATION
  Report Type: 
  Country: None (occurrence: None)
  Receive Date: 20060816
  Receipt Date: 20060731
  Transmission Date: 20061208
  Serious: Yes (Hospitalization)
  Sender: FDA-Public Use
  Company Number: 2006S1005907

PATIENT
  Age: 40 Year
  Sex: Female
  Weight: 95.2554 kg

DRUGS (3)
  1. FENTANYL TRANSDERMAL SYSTEM [Suspect]
     Dosage: 75 + 150 + 75 UG/HR; Q3D; TRANSDERMAL SYSTEM
     Route: 062
     Dates: start: 20060621, end: 20060621
  2. FENTANYL TRANSDERMAL SYSTEM [Suspect]
     Dosage: 75 + 150 + 75 UG/HR; Q3D; TRANSDERMAL SYSTEM
     Route: 062
     Dates: start: 20050201
  3. ASMANEX (CON.) [Concomitant]

REACTIONS (6)
  - APPLICATION SITE DERMATITIS [None]
  - BODY TEMPERATURE INCREASED [None]
  - DRUG EFFECT INCREASED [None]
  - INTENTIONAL DRUG MISUSE [None]
  - LOSS OF CONSCIOUSNESS [None]
  - OVERDOSE [None]
